FAERS Safety Report 19332049 (Version 1)
Quarter: 2021Q2

REPORT INFORMATION
  Report Type: Spontaneous
  Country: US (occurrence: US)
  Receive Date: 20210529
  Receipt Date: 20210529
  Transmission Date: 20210717
  Serious: Yes (Other)
  Sender: FDA-Public Use
  Company Number: US-MACLEODS PHARMACEUTICALS US LTD-MAC2021031259

PATIENT

DRUGS (4)
  1. OLANZAPINE DISINTEGRATING TABLET [Interacting]
     Active Substance: OLANZAPINE
     Dosage: 10 MILLIGRAM, BID, RAPIDLY ESCALATED
     Route: 048
  2. PSYLLIUM [Interacting]
     Active Substance: PLANTAGO SEED
     Indication: CONSTIPATION
     Dosage: 3 GRAM, BID
     Route: 065
  3. OLANZAPINE DISINTEGRATING TABLET [Suspect]
     Active Substance: OLANZAPINE
     Indication: SCHIZOAFFECTIVE DISORDER
     Dosage: UNK
     Route: 048
  4. OLANZAPINE DISINTEGRATING TABLET [Interacting]
     Active Substance: OLANZAPINE
     Dosage: UNK, BID, 5MG IN THE MORNING AND 15 MG IN THE EVENING
     Route: 048

REACTIONS (4)
  - Potentiating drug interaction [Unknown]
  - Psychotic symptom [Recovered/Resolved]
  - Psychotic disorder [Recovered/Resolved]
  - Sedation [Unknown]
